FAERS Safety Report 25233182 (Version 2)
Quarter: 2025Q3

REPORT INFORMATION
  Report Type: Spontaneous
  Country: US (occurrence: US)
  Receive Date: 20250424
  Receipt Date: 20250911
  Transmission Date: 20251020
  Serious: Yes (Other)
  Sender: COOPERSURGICAL
  Company Number: US-COOPERSURGICAL, INC.-2025CPS003051

PATIENT
  Age: 42 Year
  Sex: Female
  Weight: 63.492 kg

DRUGS (1)
  1. PARAGARD T 380A [Suspect]
     Active Substance: COPPER
     Indication: Contraception
     Route: 015
     Dates: start: 20080101

REACTIONS (27)
  - Reproductive complication associated with device [Not Recovered/Not Resolved]
  - Salpingectomy [Recovered/Resolved]
  - Surgery [Recovered/Resolved]
  - Uterine polyp [Unknown]
  - Device breakage [Recovered/Resolved]
  - Foreign body in urogenital tract [Recovered/Resolved]
  - Complication of device removal [Recovered/Resolved]
  - Embedded device [Recovered/Resolved]
  - Device dislocation [Recovered/Resolved]
  - Uterine perforation [Unknown]
  - Pelvic inflammatory disease [Unknown]
  - Emotional distress [Not Recovered/Not Resolved]
  - Proctalgia [Unknown]
  - Abdominal pain upper [Unknown]
  - Pyrexia [Recovered/Resolved]
  - Flank pain [Unknown]
  - Vulvovaginal discomfort [Unknown]
  - Complication associated with device [Recovered/Resolved]
  - Pelvic adhesions [Unknown]
  - Back pain [Unknown]
  - Abdominal pain lower [Unknown]
  - Pelvic pain [Unknown]
  - Vaginal discharge [Unknown]
  - Bacterial vaginosis [Unknown]
  - Dysmenorrhoea [Recovered/Resolved]
  - Heavy menstrual bleeding [Recovered/Resolved]
  - Discomfort [Recovered/Resolved]

NARRATIVE: CASE EVENT DATE: 20150101
